FAERS Safety Report 9399944 (Version 1)
Quarter: 2013Q3

REPORT INFORMATION
  Report Type: Spontaneous
  Country: US (occurrence: US)
  Receive Date: 20130715
  Receipt Date: 20130715
  Transmission Date: 20140515
  Serious: Yes (Other)
  Sender: FDA-Public Use
  Company Number: US-PFIZER INC-2013206395

PATIENT
  Age: 55 Year
  Sex: Female
  Weight: 113 kg

DRUGS (2)
  1. ZOLOFT [Suspect]
     Indication: DEPRESSION
     Dosage: 100 MG, 2X/DAY
     Dates: start: 1996
  2. CELEBREX [Concomitant]
     Dosage: UNK

REACTIONS (4)
  - Limb injury [Unknown]
  - Depressed mood [Unknown]
  - Sluggishness [Unknown]
  - Social avoidant behaviour [Unknown]
